FAERS Safety Report 5487772-2 (Version None)
Quarter: 2007Q3

REPORT INFORMATION
  Report Type: 
  Country: None (occurrence: None)
  Receive Date: 20070925
  Receipt Date: 20070801
  Transmission Date: 20080115
  Serious: No
  Sender: FDA-Public Use
  Company Number: 2007US001799

PATIENT
  Age: 72 Year
  Sex: Female

DRUGS (6)
  1. VESICARE [Suspect]
     Indication: MICTURITION URGENCY
     Dosage: 5 MG, UID/QD, ORAL
     Route: 048
     Dates: start: 20070730, end: 20070731
  2. VESICARE [Suspect]
     Indication: MICTURITION URGENCY
     Dosage: 5 MG, UID/QD, ORAL
     Route: 048
     Dates: start: 20070804, end: 20070804
  3. COUMADIN [Concomitant]
  4. CLONAZEPAM [Concomitant]
  5. DILTIAZEM HCL [Concomitant]
  6. SYNTHROID [Concomitant]

REACTIONS (3)
  - BLOOD PRESSURE DIASTOLIC INCREASED [None]
  - HEART RATE INCREASED [None]
  - PALPITATIONS [None]
